FAERS Safety Report 8599370-2 (Version None)
Quarter: 2012Q3

REPORT INFORMATION
  Report Type: 
  Country: None (occurrence: None)
  Receive Date: 20120816
  Receipt Date: 20120803
  Transmission Date: 20120928
  Serious: Yes (Hospitalization)
  Sender: FDA-Public Use
  Company Number: US-ROCHE-1091376

PATIENT
  Age: 36 Year
  Sex: Male
  Weight: 82.4 kg

DRUGS (4)
  1. PROGRAF [Concomitant]
     Route: 048
  2. PREDNISONE TAB [Concomitant]
     Route: 048
     Dates: start: 20120715
  3. CELLCEPT [Concomitant]
     Route: 048
  4. PLACEBO [Suspect]
     Indication: RENAL TRANSPLANT
     Dates: start: 20120718

REACTIONS (1)
  - TRANSPLANT REJECTION [None]
